FAERS Safety Report 6123512-1 (Version None)
Quarter: 2009Q1

REPORT INFORMATION
  Report Type: 
  Country: None (occurrence: None)
  Receive Date: 20090318
  Receipt Date: 20090310
  Transmission Date: 20090719
  Serious: Yes (Hospitalization)
  Sender: FDA-Public Use
  Company Number: HK-AMGEN-US331651

PATIENT
  Sex: Male

DRUGS (6)
  1. PANITUMUMAB [Suspect]
     Indication: SQUAMOUS CELL CARCINOMA
     Route: 042
     Dates: start: 20081202, end: 20090113
  2. PANITUMUMAB - STUDY PROCEDURE [Suspect]
     Dates: start: 20081202
  3. RADIATION THERAPY [Suspect]
     Dates: start: 20081202, end: 20090116
  4. CISPLATIN [Suspect]
     Route: 042
     Dates: start: 20081202, end: 20090113
  5. GLIPIZIDE [Concomitant]
     Route: 048
  6. METFORMIN HCL [Concomitant]
     Route: 048

REACTIONS (2)
  - ABSCESS [None]
  - SIALOADENITIS [None]
